FAERS Safety Report 8513773-3 (Version None)
Quarter: 2012Q3

REPORT INFORMATION
  Report Type: 
  Country: None (occurrence: None)
  Receive Date: 20120705
  Receipt Date: 20120618
  Transmission Date: 20120928
  Serious: Yes (Other)
  Sender: FDA-Public Use
  Company Number: CIP11002935

PATIENT
  Age: 51 Year
  Sex: Female

DRUGS (7)
  1. FOSAMAX [Suspect]
     Indication: OSTEOPOROSIS
     Dosage: QD, ORAL
     Route: 048
     Dates: start: 19990109
  2. FOSAMAX [Suspect]
     Indication: OSTEOPOROSIS
     Dosage: 70 MG, 1/WEEK, ORAL
     Route: 048
     Dates: end: 20061206
  3. FLUOCINOCIDE (FLUOCINONIDE) [Concomitant]
  4. RECLAST [Suspect]
     Indication: OSTEOPOROSIS
     Dosage: INTRAVENOUS INFUSION ONCE A YEAR, INTRAVENOUS
     Route: 042
     Dates: start: 20100218, end: 20110330
  5. FORTEO [Concomitant]
  6. CHOLECALCIFEROL (COLECALCIFEROL) [Concomitant]
  7. ACTONEL [Suspect]
     Indication: OSTEOPOROSIS
     Dosage: 105 MG, 1/MOUTH, ORAL
     Route: 048
     Dates: start: 20081229, end: 20100702

REACTIONS (19)
  - RHEUMATOID ARTHRITIS [None]
  - FEMUR FRACTURE [None]
  - PAIN IN EXTREMITY [None]
  - HAND FRACTURE [None]
  - CONDITION AGGRAVATED [None]
  - IMPAIRED HEALING [None]
  - OSTEONECROSIS [None]
  - FRACTURE NONUNION [None]
  - OSTEOPOROSIS [None]
  - STRESS FRACTURE [None]
  - FIBULA FRACTURE [None]
  - FOOT FRACTURE [None]
  - IRRITABLE BOWEL SYNDROME [None]
  - ARTHROPATHY [None]
  - ANKLE FRACTURE [None]
  - TIBIA FRACTURE [None]
  - FALL [None]
  - ARTHRALGIA [None]
  - BURSITIS [None]
